FAERS Safety Report 16217686 (Version 1)
Quarter: 2019Q2

REPORT INFORMATION
  Report Type: Spontaneous
  Country: US (occurrence: US)
  Receive Date: 20190419
  Receipt Date: 20190419
  Transmission Date: 20190711
  Serious: No
  Sender: FDA-Public Use
  Company Number: US-SA-2019SA107353

PATIENT
  Age: 66 Year
  Sex: Female

DRUGS (2)
  1. TOUJEO [Suspect]
     Active Substance: INSULIN GLARGINE
     Indication: TYPE 2 DIABETES MELLITUS
     Dosage: 104 U, QD
     Route: 065
  2. BASAGLAR [Concomitant]
     Active Substance: INSULIN GLARGINE
     Dosage: 65 U, BID
     Route: 065

REACTIONS (2)
  - Blood glucose increased [Unknown]
  - Therapeutic response decreased [Unknown]
